FAERS Safety Report 15107161 (Version 3)
Quarter: 2019Q4

REPORT INFORMATION
  Report Type: Spontaneous
  Country: US (occurrence: US)
  Receive Date: 20180704
  Receipt Date: 20191122
  Transmission Date: 20200122
  Serious: Yes (Death, Hospitalization, Other)
  Sender: FDA-Public Use
  Company Number: US-PFIZER INC-2018268986

PATIENT
  Age: 73 Year
  Sex: Male
  Weight: 83.45 kg

DRUGS (8)
  1. BOSULIF [Suspect]
     Active Substance: BOSUTINIB MONOHYDRATE
     Indication: CHRONIC MYELOID LEUKAEMIA
     Dosage: 400 MG, ONCE DAILY
     Dates: start: 201806, end: 20190906
  2. ZOLOFT [Concomitant]
     Active Substance: SERTRALINE HYDROCHLORIDE
     Dosage: UNK
     Dates: start: 20180625, end: 20190907
  3. LISINOPRIL. [Concomitant]
     Active Substance: LISINOPRIL
     Dosage: UNK
     Dates: end: 20190907
  4. PLAVIX [Concomitant]
     Active Substance: CLOPIDOGREL BISULFATE
     Dosage: UNK
     Dates: end: 20190906
  5. DEPAKOTE [Concomitant]
     Active Substance: DIVALPROEX SODIUM
     Dosage: UNK
     Dates: start: 20180625, end: 20190907
  6. RISPERDAL [Concomitant]
     Active Substance: RISPERIDONE
     Dosage: UNK
     Dates: start: 20180625, end: 20190906
  7. GABAPENTIN. [Concomitant]
     Active Substance: GABAPENTIN
     Dosage: UNK
     Dates: end: 20190907
  8. ATORVASTATIN [Concomitant]
     Active Substance: ATORVASTATIN
     Dosage: UNK
     Dates: end: 20190906

REACTIONS (4)
  - Cardiac tamponade [Unknown]
  - Pericardial effusion [Unknown]
  - Death [Fatal]
  - Diarrhoea [Unknown]

NARRATIVE: CASE EVENT DATE: 201806
